FAERS Safety Report 15645121 (Version 2)
Quarter: 2018Q4

REPORT INFORMATION
  Report Type: Spontaneous
  Country: US (occurrence: US)
  Receive Date: 20181121
  Receipt Date: 20181226
  Transmission Date: 20190205
  Serious: Yes (Other)
  Sender: FDA-Public Use
  Company Number: US-ASTRAZENECA-2018SF26032

PATIENT
  Age: 18113 Day
  Sex: Male
  Weight: 103.4 kg

DRUGS (35)
  1. PRILOSEC [Suspect]
     Active Substance: OMEPRAZOLE MAGNESIUM
     Route: 048
     Dates: start: 20050312
  2. PRILOSEC OTC [Suspect]
     Active Substance: OMEPRAZOLE MAGNESIUM
     Route: 048
     Dates: start: 19960105, end: 20131201
  3. ATENOLOL. [Concomitant]
     Active Substance: ATENOLOL
  4. NEXIUM [Suspect]
     Active Substance: ESOMEPRAZOLE MAGNESIUM
     Route: 048
     Dates: start: 19960105, end: 20131201
  5. PANTOPRAZOL [Suspect]
     Active Substance: PANTOPRAZOLE SODIUM
     Route: 065
     Dates: start: 19960105, end: 20131201
  6. AMOXICILLIN. [Concomitant]
     Active Substance: AMOXICILLIN
  7. OXAPROZIN. [Concomitant]
     Active Substance: OXAPROZIN
  8. SIMVASTATIN. [Concomitant]
     Active Substance: SIMVASTATIN
  9. PRILOSEC [Suspect]
     Active Substance: OMEPRAZOLE MAGNESIUM
     Route: 048
     Dates: start: 19960105, end: 20131201
  10. PREVACID [Suspect]
     Active Substance: LANSOPRAZOLE
     Route: 065
     Dates: start: 19960105, end: 20131201
  11. GLIPIZIDE. [Concomitant]
     Active Substance: GLIPIZIDE
  12. TOPAMAX [Concomitant]
     Active Substance: TOPIRAMATE
  13. TRAMADOL. [Concomitant]
     Active Substance: TRAMADOL
  14. REQUIP [Concomitant]
     Active Substance: ROPINIROLE HYDROCHLORIDE
  15. PROMETHAZINE [Concomitant]
     Active Substance: PROMETHAZINE\PROMETHAZINE HYDROCHLORIDE
  16. SERTRALINE [Concomitant]
     Active Substance: SERTRALINE HYDROCHLORIDE
  17. NEXIUM 24HR [Suspect]
     Active Substance: ESOMEPRAZOLE MAGNESIUM
     Route: 048
     Dates: start: 19960105, end: 20131201
  18. CAPTOPRIL. [Concomitant]
     Active Substance: CAPTOPRIL
  19. MELOXICAM. [Concomitant]
     Active Substance: MELOXICAM
  20. CLONIDINE. [Concomitant]
     Active Substance: CLONIDINE
  21. LABETALOL [Concomitant]
     Active Substance: LABETALOL\LABETALOL HYDROCHLORIDE
  22. ASPIRIN. [Concomitant]
     Active Substance: ASPIRIN
  23. ROBAXIN [Concomitant]
     Active Substance: METHOCARBAMOL
  24. ACETAMINOPHEN. [Concomitant]
     Active Substance: ACETAMINOPHEN
  25. CARVEDILOL. [Concomitant]
     Active Substance: CARVEDILOL
  26. ALPRAZOLAM. [Concomitant]
     Active Substance: ALPRAZOLAM
  27. AZITHROMYCIN ANHYDROUS. [Concomitant]
     Active Substance: AZITHROMYCIN ANHYDROUS
  28. DICLOFENAC [Concomitant]
     Active Substance: DICLOFENAC
  29. NORVASC [Concomitant]
     Active Substance: AMLODIPINE BESYLATE
  30. TYLENOL [Concomitant]
     Active Substance: ACETAMINOPHEN
  31. FIORICET [Concomitant]
     Active Substance: ACETAMINOPHEN\BUTALBITAL\CAFFEINE
  32. HYDROCODONE [Concomitant]
     Active Substance: HYDROCODONE
  33. LOVASTATIN. [Concomitant]
     Active Substance: LOVASTATIN
  34. TENEX [Concomitant]
     Active Substance: GUANFACINE HYDROCHLORIDE
  35. METFORMIN [Concomitant]
     Active Substance: METFORMIN HYDROCHLORIDE

REACTIONS (2)
  - Renal failure [Unknown]
  - Chronic kidney disease [Unknown]

NARRATIVE: CASE EVENT DATE: 20131111
